FAERS Safety Report 8024667-4 (Version None)
Quarter: 2011Q4

REPORT INFORMATION
  Report Type: 
  Country: None (occurrence: None)
  Receive Date: 20111130
  Receipt Date: 20110413
  Transmission Date: 20120403
  Serious: Yes (Other)
  Sender: FDA-Public Use
  Company Number: PHHY2011US31405

PATIENT
  Sex: Male

DRUGS (2)
  1. VYTORIN [Concomitant]
  2. TEKTURNA [Suspect]
     Dosage: 150 MG, ONCE DAILY

REACTIONS (1)
  - BLOOD PRESSURE INCREASED [None]
